FAERS Safety Report 8006909-4 (Version None)
Quarter: 2011Q4

REPORT INFORMATION
  Report Type: 
  Country: None (occurrence: None)
  Receive Date: 20111227
  Receipt Date: 20111217
  Transmission Date: 20120403
  Serious: Yes (Hospitalization, Other)
  Sender: FDA-Public Use
  Company Number: US-BAYER-201027352NA

PATIENT
  Age: 24 Year
  Sex: Female
  Weight: 99.773 kg

DRUGS (9)
  1. DROSPIRENONE AND ETHINYL ESTRADIOL [Suspect]
     Indication: MENSTRUAL CYCLE MANAGEMENT
     Dosage: UNK UNK, UNK
     Route: 048
     Dates: start: 20080101, end: 20080901
  2. BUPROPION [Concomitant]
  3. IBUPROFEN [Concomitant]
  4. METFORMIN [Concomitant]
     Indication: POLYCYSTIC OVARIES
  5. PROVERA [Concomitant]
  6. METFORMIN [Concomitant]
     Indication: INSULIN RESISTANCE
  7. DESOGESTREL AND ETHINYL ESTRADIOL [Concomitant]
  8. YASMIN [Suspect]
     Indication: MENSTRUAL CYCLE MANAGEMENT
     Dosage: UNK UNK, UNK
     Route: 048
     Dates: start: 20080101, end: 20080901
  9. YAZ [Suspect]
     Indication: MENSTRUAL CYCLE MANAGEMENT
     Dosage: UNK UNK, UNK
     Route: 048
     Dates: start: 20080101, end: 20080901

REACTIONS (4)
  - GALLBLADDER INJURY [None]
  - CHOLECYSTITIS ACUTE [None]
  - INSOMNIA [None]
  - GALLBLADDER DISORDER [None]
